FAERS Safety Report 7837701 (Version 2)
Quarter: 2013Q2

REPORT INFORMATION
  Report Type: Spontaneous
  Country: US (occurrence: US)
  Receive Date: 20110302
  Receipt Date: 20130425
  Transmission Date: 20140414
  Serious: Yes (Hospitalization, Other)
  Sender: FDA-Public Use
  Company Number: US-PFIZER INC-2010007914

PATIENT
  Age: 11 Year
  Sex: Male

DRUGS (2)
  1. DILANTIN-125 [Suspect]
     Indication: CONVULSION
     Dosage: 100 MG, 3X/DAY
     Route: 048
     Dates: start: 19951002
  2. DILANTIN [Suspect]
     Indication: CONVULSION
     Dosage: 200 MG, 2X/DAY
     Route: 051
     Dates: start: 19950929, end: 19950929

REACTIONS (1)
  - Stevens-Johnson syndrome [Unknown]
